FAERS Safety Report 18048682 (Version 1)
Quarter: 2020Q3

REPORT INFORMATION
  Report Type: Spontaneous
  Country: FR (occurrence: FR)
  Receive Date: 20200721
  Receipt Date: 20200721
  Transmission Date: 20201103
  Serious: Yes (Other)
  Sender: FDA-Public Use
  Company Number: FR-ABBVIE-20K-056-3490467-00

PATIENT
  Sex: Male

DRUGS (1)
  1. HUMIRA [Suspect]
     Active Substance: ADALIMUMAB
     Indication: CROHN^S DISEASE
     Route: 058
     Dates: start: 202003

REACTIONS (10)
  - Rash erythematous [Unknown]
  - Depression [Unknown]
  - Haematospermia [Unknown]
  - Myalgia [Unknown]
  - Headache [Unknown]
  - Tremor [Unknown]
  - Suicidal ideation [Unknown]
  - Muscular weakness [Unknown]
  - Hot flush [Unknown]
  - Crying [Unknown]

NARRATIVE: CASE EVENT DATE: 2020
